FAERS Safety Report 25766319 (Version 2)
Quarter: 2025Q3

REPORT INFORMATION
  Report Type: Spontaneous
  Country: US (occurrence: US)
  Receive Date: 20250905
  Receipt Date: 20250912
  Transmission Date: 20251020
  Serious: No
  Sender: LUPIN
  Company Number: US-LUPIN PHARMACEUTICALS INC.-2025-07888

PATIENT

DRUGS (1)
  1. TOLVAPTAN [Suspect]
     Active Substance: TOLVAPTAN
     Indication: Congenital cystic kidney disease
     Dosage: 15 MG, BID (ONE 15 MG TABLET BY MOUTH EVERY MORNING UPON WAKING AND THEN TAKE ONE 15 MG TABLET BY MOUTH 8 HOURS LATER EVERY DAY)

REACTIONS (2)
  - Urinary tract infection [Unknown]
  - Pain [Unknown]
